FAERS Safety Report 9809195 (Version 1)
Quarter: 2014Q1

REPORT INFORMATION
  Report Type: Spontaneous
  Country: US (occurrence: US)
  Receive Date: 20140110
  Receipt Date: 20140110
  Transmission Date: 20141002
  Serious: No
  Sender: FDA-Public Use
  Company Number: US-BAUSCH-BL-2013-005271

PATIENT
  Age: 71 Year
  Sex: Female

DRUGS (2)
  1. LATANOPROST OPHTHALMIC SOLUTION 0.005% [Suspect]
     Indication: GLAUCOMA
     Dosage: ONE DROP INTO RIGHT EYE AT BEDTIME
     Route: 047
     Dates: start: 20130923
  2. LATANOPROST OPHTHALMIC SOLUTION 0.005% [Suspect]
     Dosage: ONE DROP INTO LEFT EYE AT BEDTIME
     Route: 047
     Dates: start: 20130923

REACTIONS (2)
  - Vision blurred [Not Recovered/Not Resolved]
  - Lacrimation increased [Not Recovered/Not Resolved]
